FAERS Safety Report 12418537 (Version 2)
Quarter: 2016Q2

REPORT INFORMATION
  Report Type: Spontaneous
  Country: RO (occurrence: RO)
  Receive Date: 20160531
  Receipt Date: 20160603
  Transmission Date: 20160815
  Serious: Yes (Death, Other)
  Sender: FDA-Public Use
  Company Number: RO-AMGEN-ROUSP2016068624

PATIENT
  Age: 62 Year
  Sex: Male
  Weight: 60 kg

DRUGS (1)
  1. ENBREL [Suspect]
     Active Substance: ETANERCEPT
     Indication: PSORIASIS
     Dosage: 50 MG, WEEKLY
     Route: 058
     Dates: start: 20110207, end: 20150416

REACTIONS (1)
  - Lung neoplasm [Fatal]

NARRATIVE: CASE EVENT DATE: 201502
